FAERS Safety Report 24533340 (Version 1)
Quarter: 2024Q4

REPORT INFORMATION
  Report Type: Spontaneous
  Country: DE (occurrence: DE)
  Receive Date: 20241022
  Receipt Date: 20241022
  Transmission Date: 20250114
  Serious: Yes (Other)
  Sender: NOVARTIS
  Company Number: DE-002147023-NVSC2024DE185224

PATIENT
  Sex: Male
  Weight: 72 kg

DRUGS (4)
  1. TASIGNA [Suspect]
     Active Substance: NILOTINIB
     Indication: Chronic myeloid leukaemia
     Dosage: 250 MG
     Route: 065
     Dates: start: 2019
  2. ATORVASTATIN [Concomitant]
     Active Substance: ATORVASTATIN
     Indication: Product used for unknown indication
     Dosage: UNK
     Route: 065
  3. ROSUVASTATIN [Concomitant]
     Active Substance: ROSUVASTATIN
     Indication: Product used for unknown indication
     Dosage: UNK
     Route: 065
  4. METFORMIN [Concomitant]
     Active Substance: METFORMIN HYDROCHLORIDE
     Indication: Product used for unknown indication
     Dosage: UNK
     Route: 065

REACTIONS (8)
  - Arteriosclerosis [Unknown]
  - Arteriosclerosis [Unknown]
  - Carotid artery disease [Unknown]
  - Peripheral artery stenosis [Unknown]
  - Alopecia [Not Recovered/Not Resolved]
  - Muscle disorder [Recovering/Resolving]
  - Type IIa hyperlipidaemia [Unknown]
  - Angiopathy [Not Recovered/Not Resolved]
